FAERS Safety Report 15967063 (Version 1)
Quarter: 2019Q1

REPORT INFORMATION
  Report Type: Report from Study
  Country: US (occurrence: US)
  Receive Date: 20190215
  Receipt Date: 20190215
  Transmission Date: 20190418
  Serious: Yes (Hospitalization)
  Sender: FDA-Public Use
  Company Number: US-SA-2019SA038482

PATIENT
  Age: 76 Year
  Sex: Male

DRUGS (1)
  1. ENOXAPARIN SODIUM. [Suspect]
     Active Substance: ENOXAPARIN SODIUM
     Indication: ANTICOAGULANT THERAPY
     Dosage: 60 MG, BID
     Route: 058
     Dates: start: 20181214

REACTIONS (12)
  - Malaise [Recovered/Resolved]
  - Fall [Unknown]
  - Haematoma [Recovered/Resolved]
  - Thrombosis [Recovered/Resolved]
  - Weight increased [Not Recovered/Not Resolved]
  - Disorientation [Recovered/Resolved]
  - Bowel movement irregularity [Recovered/Resolved]
  - Feeling abnormal [Not Recovered/Not Resolved]
  - Fatigue [Not Recovered/Not Resolved]
  - Compression fracture [Recovered/Resolved]
  - Micturition disorder [Recovered/Resolved]
  - Gait disturbance [Not Recovered/Not Resolved]
